FAERS Safety Report 20186869 (Version 3)
Quarter: 2022Q1

REPORT INFORMATION
  Report Type: Report from Study
  Country: MX (occurrence: MX)
  Receive Date: 20211215
  Receipt Date: 20220206
  Transmission Date: 20220423
  Serious: Yes (Hospitalization)
  Sender: FDA-Public Use
  Company Number: MX-NOVARTISPH-NVSC2021MX286943

PATIENT
  Sex: Male
  Weight: 85 kg

DRUGS (2)
  1. EXFORGE [Suspect]
     Active Substance: AMLODIPINE BESYLATE\VALSARTAN
     Indication: Hypertension
     Dosage: 1 DOSAGE FORM (160/5MG), QD, STARTED 6 YEARS AGO
     Route: 048
     Dates: end: 202003
  2. EXFORGE [Suspect]
     Active Substance: AMLODIPINE BESYLATE\VALSARTAN
     Dosage: 1.5 DOSAGE FORM, (160/5MG), QD; 1 IN THE MORNING AND ? AT NIGHT
     Route: 048
     Dates: start: 202003

REACTIONS (6)
  - Blood electrolytes decreased [Recovered/Resolved]
  - Hypoacusis [Not Recovered/Not Resolved]
  - Blood pressure inadequately controlled [Recovered/Resolved]
  - Blood triglycerides increased [Recovered/Resolved]
  - Dyspepsia [Recovered/Resolved]
  - Inappropriate schedule of product administration [Unknown]

NARRATIVE: CASE EVENT DATE: 20190101
